FAERS Safety Report 8694802 (Version 2)
Quarter: 2012Q4

REPORT INFORMATION
  Report Type: 
  Country: FI (occurrence: FI)
  Receive Date: 20120731
  Receipt Date: 20121108
  Transmission Date: 20130627
  Serious: Yes (Hospitalization, Other)
  Sender: FDA-Public Use
  Company Number: FI-AMGEN-FINSP2012041371

PATIENT
  Age: 71 Year
  Sex: Female

DRUGS (4)
  1. NEUPOGEN [Suspect]
     Indication: NEUTROPENIA
     Dosage: 180 mug, UNK
  2. PEGASYS [Suspect]
     Indication: HEPATITIS C
     Dosage: 180 mug, UNK
  3. COPEGUS [Suspect]
     Indication: HEPATITIS C
     Dosage: UNK
  4. REBETOL [Suspect]
     Indication: HEPATITIS C
     Dosage: UNK

REACTIONS (12)
  - Neutropenia [Unknown]
  - Retinal disorder [Unknown]
  - Skin ulcer [Unknown]
  - Alopecia [Not Recovered/Not Resolved]
  - Fatigue [Not Recovered/Not Resolved]
  - Asthma [Not Recovered/Not Resolved]
  - Weight decreased [Not Recovered/Not Resolved]
  - Asthenia [Not Recovered/Not Resolved]
  - White blood cell count decreased [Recovered/Resolved]
  - Arthralgia [Not Recovered/Not Resolved]
  - Rash [Not Recovered/Not Resolved]
  - Bone pain [Not Recovered/Not Resolved]
